FAERS Safety Report 6595873-0 (Version None)
Quarter: 2010Q1

REPORT INFORMATION
  Report Type: 
  Country: None (occurrence: None)
  Receive Date: 20100219
  Receipt Date: 20100219
  Transmission Date: 20100710
  Serious: No
  Sender: FDA-Public Use
  Company Number: None

PATIENT
  Sex: Female
  Weight: 52.1637 kg

DRUGS (1)
  1. GLIPIZIDE [Suspect]
     Dosage: TAKE ONE EVERY DAY
     Dates: start: 20090201, end: 20091028

REACTIONS (6)
  - ASTHENIA [None]
  - DIZZINESS [None]
  - EYE HAEMORRHAGE [None]
  - EYE PAIN [None]
  - RASH PRURITIC [None]
  - VISION BLURRED [None]
